FAERS Safety Report 7475478-X (Version None)
Quarter: 2011Q2

REPORT INFORMATION
  Report Type: 
  Country: None (occurrence: None)
  Receive Date: 20110512
  Receipt Date: 20110506
  Transmission Date: 20111010
  Serious: Yes (Hospitalization)
  Sender: FDA-Public Use
  Company Number: PHHO2011AU07920

PATIENT
  Sex: Male

DRUGS (11)
  1. PREDNISOLONE [Concomitant]
  2. VITAMIN D [Concomitant]
  3. PANAMAX [Concomitant]
  4. ALPHAPRIL [Concomitant]
  5. SUNITINIB MALATE [Suspect]
     Indication: RENAL CELL CARCINOMA
     Route: 048
  6. CALCIUM [Concomitant]
  7. AFINITOR [Suspect]
     Indication: RENAL CELL CARCINOMA
     Dosage: UNK
     Route: 048
  8. ASPIRIN [Concomitant]
  9. MULTI-VITAMIN [Concomitant]
  10. FISH OIL [Concomitant]
  11. PANTOPRAZOLE [Concomitant]

REACTIONS (1)
  - HAEMATEMESIS [None]
